FAERS Safety Report 4311190-3 (Version None)
Quarter: 2004Q1

REPORT INFORMATION
  Report Type: 
  Country: None (occurrence: None)
  Receive Date: 20040302
  Receipt Date: 20040223
  Transmission Date: 20041129
  Serious: Yes (Hospitalization)
  Sender: FDA-Public Use
  Company Number: US-JNJFOC-20040205029

PATIENT
  Age: 64 Year
  Sex: Female

DRUGS (11)
  1. INFLIXIMAB (INFLIXIMAB, RECOMBINANT) LYOPHILIZED POWDER [Suspect]
     Indication: RHEUMATOID ARTHRITIS
     Dosage: INTRAVENOUS
     Route: 042
     Dates: start: 20010222
  2. PREMARIN [Concomitant]
  3. SYNTHROID [Concomitant]
  4. PREDNISONE [Concomitant]
  5. ZOLOFT [Concomitant]
  6. LIPITOR [Concomitant]
  7. PRINIVIL [Concomitant]
  8. NEXIUM [Concomitant]
  9. OXYCONTIN [Concomitant]
  10. AMBIEN [Concomitant]
  11. METHOTREXATE [Concomitant]

REACTIONS (4)
  - DEHYDRATION [None]
  - FOOD POISONING [None]
  - GASTROENTERITIS [None]
  - HIATUS HERNIA [None]
